FAERS Safety Report 9076797 (Version 1)
Quarter: 2013Q1

REPORT INFORMATION
  Report Type: Report from Study
  Country: US (occurrence: US)
  Receive Date: 20130129
  Receipt Date: 20130129
  Transmission Date: 20140127
  Serious: No
  Sender: FDA-Public Use
  Company Number: US-ABBOTT-12P-163-0944359-00

PATIENT
  Age: 23 Year
  Sex: Female

DRUGS (4)
  1. HUMIRA 40 MG/0.8 ML PEN [Suspect]
     Indication: PSORIASIS
     Dosage: LOADING DOSE
     Dates: start: 20120607
  2. VICODIN [Concomitant]
     Indication: BACK PAIN
     Dosage: 5/500MG ONE OR TWO TABLETS AS NEEDED
  3. PERCOCET [Concomitant]
     Indication: BACK PAIN
     Dosage: 10/650 ONE AS NEEDED
  4. IBUPROFEN [Concomitant]
     Indication: BACK PAIN

REACTIONS (1)
  - Injection site bruising [Recovering/Resolving]
